FAERS Safety Report 6612117-1 (Version None)
Quarter: 2010Q1

REPORT INFORMATION
  Report Type: 
  Country: None (occurrence: None)
  Receive Date: 20100303
  Receipt Date: 20100219
  Transmission Date: 20100710
  Serious: Yes (Hospitalization)
  Sender: FDA-Public Use
  Company Number: FR-SP-2010-01173

PATIENT
  Sex: Male
  Weight: 70 kg

DRUGS (2)
  1. IMMUCYST [Suspect]
     Indication: BLADDER CANCER
     Route: 065
  2. OFLOCET (OFLOXACINE) [Concomitant]
     Route: 065

REACTIONS (7)
  - BLADDER PERFORATION [None]
  - CARDIAC ARREST [None]
  - ELECTROCUTION [None]
  - NECROSIS [None]
  - POLYP [None]
  - THERMAL BURN [None]
  - URETERIC STENOSIS [None]
